FAERS Safety Report 13303736 (Version 2)
Quarter: 2017Q4

REPORT INFORMATION
  Report Type: Spontaneous
  Country: US (occurrence: US)
  Receive Date: 20170307
  Receipt Date: 20171017
  Transmission Date: 20180320
  Serious: No
  Sender: FDA-Public Use
  Company Number: US-TAIHO ONCOLOGY INC-EU-2017-00410

PATIENT
  Age: 58 Year
  Sex: Female

DRUGS (1)
  1. LONSURF [Suspect]
     Active Substance: TIPIRACIL HYDROCHLORIDE\TRIFLURIDINE
     Indication: COLON CANCER
     Route: 048
     Dates: start: 20160927, end: 20170131

REACTIONS (4)
  - Skin discolouration [Unknown]
  - Alopecia [Unknown]
  - Drug ineffective [Unknown]
  - Nail discolouration [Unknown]

NARRATIVE: CASE EVENT DATE: 20170131
